FAERS Safety Report 14647129 (Version 3)
Quarter: 2018Q4

REPORT INFORMATION
  Report Type: Spontaneous
  Country: IT (occurrence: IT)
  Receive Date: 20180316
  Receipt Date: 20181110
  Transmission Date: 20190204
  Serious: Yes (Hospitalization)
  Sender: FDA-Public Use
  Company Number: IT-ACCORD-064600

PATIENT
  Age: 6 Year
  Sex: Female
  Weight: 24 kg

DRUGS (25)
  1. NYSTATIN/NYSTATIN/LIPOSOME [Concomitant]
     Dosage: 15 ML
     Route: 048
     Dates: start: 20161212, end: 20170120
  2. RANITIDINE. [Concomitant]
     Active Substance: RANITIDINE
     Dosage: 100 MG
     Route: 042
     Dates: start: 20161213
  3. URSODEOXYCHOLATE SODIUM/URSODEOXYCHOLIC ACID [Concomitant]
     Dosage: 240 MG
     Dates: start: 20161212, end: 20170120
  4. LEDERFOLIN [Concomitant]
     Active Substance: LEUCOVORIN CALCIUM
     Dates: start: 20161224, end: 20161230
  5. ITRACONAZOLE. [Concomitant]
     Active Substance: ITRACONAZOLE
     Dosage: 120 MG
     Route: 048
     Dates: start: 20161212, end: 20161229
  6. HEPARIN [Concomitant]
     Active Substance: HEPARIN SODIUM
     Dosage: 2370 KIU
     Route: 042
     Dates: start: 20161213
  7. ACICLOVIR [Concomitant]
     Active Substance: ACYCLOVIR
     Dates: start: 20161212, end: 20161218
  8. LASIX [Concomitant]
     Active Substance: FUROSEMIDE
     Dosage: STRENGTH 25 MG?12.5 FROM 12-DEC-2016
     Route: 042
     Dates: start: 20161212, end: 20161212
  9. SANDIMMUN [Concomitant]
     Active Substance: CYCLOSPORINE
     Dosage: 72 MG
     Dates: start: 20161220
  10. PRIVIGEN [Concomitant]
     Active Substance: HUMAN IMMUNOGLOBULIN G
     Dates: start: 20161217, end: 20170109
  11. DIAMINOCILLINA [Concomitant]
     Active Substance: PENICILLIN G BENZATHINE
     Dosage: 600000 KIU
     Dates: start: 20161213
  12. TEGRETOL [Concomitant]
     Active Substance: CARBAMAZEPINE
     Dosage: 240 MG
     Dates: start: 20161213, end: 20161218
  13. EMEND [Concomitant]
     Active Substance: APREPITANT
     Dates: start: 20161214, end: 20161216
  14. PERFALGAN [Concomitant]
     Active Substance: ACETAMINOPHEN
     Dosage: 375 MG
     Dates: start: 20161220, end: 20161221
  15. ALOXI [Concomitant]
     Active Substance: PALONOSETRON HYDROCHLORIDE
     Dosage: STRENGTH 500 MICROGRAM
     Route: 042
     Dates: start: 20161214, end: 20161217
  16. ENDOXAN BAXTER [Suspect]
     Active Substance: CYCLOPHOSPHAMIDE
     Indication: ALLOGENIC BONE MARROW TRANSPLANTATION THERAPY
     Dosage: 1420 MG DAILY
     Route: 042
     Dates: start: 20161218, end: 20161219
  17. ALKERAN [Suspect]
     Active Substance: MELPHALAN
     Indication: ALLOGENIC BONE MARROW TRANSPLANTATION THERAPY
     Dosage: STRENGTH 50 MG/10 ML
     Route: 042
     Dates: start: 20161220, end: 20161220
  18. BACTRIM [Concomitant]
     Active Substance: SULFAMETHOXAZOLE\TRIMETHOPRIM
     Dosage: 5 ML?STRENGTH: 80 MG/5 ML + 400 MG/5 ML
     Route: 048
  19. TRIMETON [Concomitant]
     Active Substance: CHLORPHENIRAMINE MALEATE
     Dosage: 10 MG
     Dates: start: 20161220, end: 20161221
  20. URBASON [Concomitant]
     Active Substance: METHYLPREDNISOLONE
     Dosage: 24 MG
     Route: 042
     Dates: start: 20161220, end: 20161221
  21. METHOTREXATE. [Suspect]
     Active Substance: METHOTREXATE
     Indication: ALLOGENIC BONE MARROW TRANSPLANTATION THERAPY
     Route: 042
     Dates: start: 20161223, end: 20161228
  22. BUSILVEX [Suspect]
     Active Substance: BUSULFAN
     Indication: ALLOGENIC BONE MARROW TRANSPLANTATION THERAPY
     Dosage: 90 MG DAILY?STRENGTH 6 MG/ML
     Route: 042
     Dates: start: 20161214, end: 20161217
  23. CIPROFLOXACIN. [Concomitant]
     Active Substance: CIPROFLOXACIN
     Dosage: 500 MG
     Route: 048
     Dates: start: 20161212, end: 20161229
  24. ANTITHYMOCYTE IMMUNOGLOBULIN [Suspect]
     Active Substance: THYMOCYTE IMMUNE GLOBULIN NOS
     Indication: ALLOGENIC BONE MARROW TRANSPLANTATION THERAPY
     Dosage: 63 MG DAILY
     Route: 042
     Dates: start: 20161220, end: 20161221
  25. DELTACORTENE [Concomitant]
     Active Substance: PREDNISONE
     Dosage: STRENGTH 25 MG
     Dates: start: 20161213, end: 20161220

REACTIONS (12)
  - Abdominal pain [Recovering/Resolving]
  - Petechiae [Recovered/Resolved]
  - Vulvovaginal pruritus [Recovered/Resolved]
  - Vulvovaginal candidiasis [Recovered/Resolved]
  - Erythema [Recovering/Resolving]
  - Conjunctivitis [Recovering/Resolving]
  - Palmar erythema [Recovering/Resolving]
  - Body temperature increased [Recovered/Resolved]
  - Culture stool positive [Recovering/Resolving]
  - Candida test positive [Recovering/Resolving]
  - Diarrhoea [Recovering/Resolving]
  - Haematuria [Recovered/Resolved]

NARRATIVE: CASE EVENT DATE: 20161223
